FAERS Safety Report 21402908 (Version 1)
Quarter: 2022Q4

REPORT INFORMATION
  Report Type: Spontaneous
  Country: NL (occurrence: NL)
  Receive Date: 20221003
  Receipt Date: 20221003
  Transmission Date: 20230113
  Serious: Yes (Other)
  Sender: FDA-Public Use
  Company Number: NL-TEVA-2022-NL-2079841

PATIENT
  Age: 83 Year
  Sex: Female

DRUGS (1)
  1. PREGABALIN [Suspect]
     Active Substance: PREGABALIN
     Indication: Product used for unknown indication
     Dosage: 10500 MG
     Route: 048

REACTIONS (7)
  - Confusional state [Unknown]
  - Loss of consciousness [Unknown]
  - Somnolence [Unknown]
  - Headache [Unknown]
  - Toxicity to various agents [Unknown]
  - Intentional overdose [Unknown]
  - Prescribed overdose [Unknown]
